FAERS Safety Report 5911557-3 (Version None)
Quarter: 2008Q4

REPORT INFORMATION
  Report Type: 
  Country: None (occurrence: None)
  Receive Date: 20081003
  Receipt Date: 20080924
  Transmission Date: 20090506
  Serious: Yes (Hospitalization)
  Sender: FDA-Public Use
  Company Number: 2007BI021844

PATIENT
  Age: 59 Year
  Sex: Male

DRUGS (2)
  1. AVONEX [Suspect]
     Indication: MULTIPLE SCLEROSIS
     Dosage: 30 UG; IM 30UG;QW;IM
     Route: 030
     Dates: start: 20000101
  2. AVONEX [Suspect]
     Indication: MULTIPLE SCLEROSIS
     Dosage: 30 UG; IM 30UG;QW;IM
     Route: 030
     Dates: start: 20010201

REACTIONS (7)
  - CONDITION AGGRAVATED [None]
  - HEART RATE INCREASED [None]
  - HYPERTENSION [None]
  - PAIN [None]
  - PARKINSON'S DISEASE [None]
  - PYREXIA [None]
  - SWELLING [None]
